FAERS Safety Report 11392506 (Version 5)
Quarter: 2015Q4

REPORT INFORMATION
  Report Type: Report from Study
  Country: CO (occurrence: CO)
  Receive Date: 20150818
  Receipt Date: 20151214
  Transmission Date: 20160304
  Serious: Yes (Hospitalization, Other)
  Sender: FDA-Public Use
  Company Number: PHHY2015CO099810

PATIENT
  Sex: Female
  Weight: 53 kg

DRUGS (7)
  1. EXJADE [Suspect]
     Active Substance: DEFERASIROX
     Indication: SICKLE CELL ANAEMIA
     Dosage: 2 DF (10 MG/KG), QD
     Route: 048
  2. ERYTHROPOIETIN [Concomitant]
     Active Substance: ERYTHROPOIETIN
     Indication: PRODUCT USED FOR UNKNOWN INDICATION
     Route: 065
  3. EXJADE [Suspect]
     Active Substance: DEFERASIROX
     Dosage: 2 DF (10 MG/KG), QD
     Route: 048
     Dates: start: 20140801
  4. THIAMINE. [Concomitant]
     Active Substance: THIAMINE
     Indication: SICKLE CELL ANAEMIA
     Dosage: UNK UKN, QD
     Route: 065
  5. ASPIRETINA [Concomitant]
     Indication: PRODUCT USED FOR UNKNOWN INDICATION
     Dosage: UNK UKN, QD
     Route: 065
  6. FOLIC ACID. [Concomitant]
     Active Substance: FOLIC ACID
     Indication: SICKLE CELL ANAEMIA
     Dosage: 4 MG, QD
     Route: 065
  7. FERROUS SULFATE [Concomitant]
     Active Substance: FERROUS SULFATE\FERROUS SULFATE, DRIED
     Indication: PRODUCT USED FOR UNKNOWN INDICATION
     Dosage: UNK UNK, QD
     Route: 065

REACTIONS (10)
  - Impaired healing [Unknown]
  - Platelet count decreased [Unknown]
  - Haemoglobin decreased [Unknown]
  - Osteomyelitis [Recovered/Resolved]
  - Swelling face [Unknown]
  - Peripheral vascular disorder [Unknown]
  - General physical health deterioration [Recovered/Resolved]
  - Acne [Recovering/Resolving]
  - Skin ulcer [Unknown]
  - Hypersensitivity [Recovered/Resolved]
